FAERS Safety Report 21151891 (Version 1)
Quarter: 2022Q3

REPORT INFORMATION
  Report Type: Spontaneous
  Country: US (occurrence: US)
  Receive Date: 20220730
  Receipt Date: 20220730
  Transmission Date: 20221026
  Serious: No
  Sender: FDA-Public Use
  Company Number: US-SA-SAC20220720000237

PATIENT
  Sex: Male

DRUGS (2)
  1. DUPIXENT [Suspect]
     Active Substance: DUPILUMAB
     Indication: Eczema herpeticum
     Dosage: 300 MG, QOW,300 MG /2ML, QOW
     Route: 058
     Dates: start: 20220601
  2. DUPIXENT [Suspect]
     Active Substance: DUPILUMAB
     Indication: Psoriasis

REACTIONS (6)
  - Dry skin [Recovered/Resolved]
  - Pruritus [Recovered/Resolved]
  - Eczema [Unknown]
  - Skin exfoliation [Recovered/Resolved]
  - Skin ulcer [Recovered/Resolved]
  - Product use in unapproved indication [Unknown]
